FAERS Safety Report 17181308 (Version 1)
Quarter: 2019Q4

REPORT INFORMATION
  Report Type: Spontaneous
  Country: FR (occurrence: FR)
  Receive Date: 20191220
  Receipt Date: 20191220
  Transmission Date: 20200122
  Serious: Yes (Hospitalization)
  Sender: FDA-Public Use
  Company Number: FR-TEVA-2019-FR-1153884

PATIENT
  Age: 79 Year
  Sex: Male
  Weight: 78 kg

DRUGS (14)
  1. ISOPHANE INSULIN [Concomitant]
     Active Substance: INSULIN NOS
  2. MIRCERA [Concomitant]
     Active Substance: METHOXY POLYETHYLENE GLYCOL-EPOETIN BETA
  3. KARDEGIC [Concomitant]
     Active Substance: ASPIRIN DL-LYSINE
  4. UVEDOSE 100 000 UI, SOLUTION BUVABLE EN AMPOULE [Concomitant]
     Active Substance: CHOLECALCIFEROL
  5. LASILIX [Concomitant]
     Active Substance: FUROSEMIDE
  6. PARACETAMOL [Concomitant]
     Active Substance: ACETAMINOPHEN
  7. ATORVASTATINE [Suspect]
     Active Substance: ATORVASTATIN
     Indication: DYSLIPIDAEMIA
     Dosage: 40 MG
     Route: 048
     Dates: start: 20191014, end: 20191107
  8. DIFFU K, G?LULE [Concomitant]
     Active Substance: POTASSIUM CHLORIDE
  9. IMOVANE [Concomitant]
     Active Substance: ZOPICLONE
  10. IRBESARTAN. [Concomitant]
     Active Substance: IRBESARTAN
  11. LEVOCARNIL 100 MG/ML, SOLUTION BUVABLE [Concomitant]
  12. PANTOPRAZOLE [Suspect]
     Active Substance: PANTOPRAZOLE
     Indication: HAEMORRHAGE PROPHYLAXIS
     Dosage: 20 MG
     Route: 048
     Dates: start: 20191014, end: 20191107
  13. CALCIPARINE [Concomitant]
     Active Substance: HEPARIN CALCIUM
  14. ALLOPURINOL. [Concomitant]
     Active Substance: ALLOPURINOL
     Indication: HYPERURICAEMIA
     Route: 048
     Dates: end: 20191023

REACTIONS (1)
  - Neutropenia [Recovered/Resolved]

NARRATIVE: CASE EVENT DATE: 20191023
